FAERS Safety Report 6996512-7 (Version None)
Quarter: 2010Q3

REPORT INFORMATION
  Report Type: 
  Country: None (occurrence: None)
  Receive Date: 20100918
  Receipt Date: 20090320
  Transmission Date: 20110219
  Serious: No
  Sender: FDA-Public Use
  Company Number: US-WYE-H08661409

PATIENT
  Sex: Female

DRUGS (1)
  1. ALAVERT [Suspect]

REACTIONS (2)
  - RASH MACULO-PAPULAR [None]
  - RASH PRURITIC [None]
